FAERS Safety Report 9243452 (Version 2)
Quarter: 2013Q2

REPORT INFORMATION
  Report Type: Spontaneous
  Country: JP (occurrence: JP)
  Receive Date: 20130422
  Receipt Date: 20130520
  Transmission Date: 20140414
  Serious: Yes (Hospitalization)
  Sender: FDA-Public Use
  Company Number: JP-BRISTOL-MYERS SQUIBB COMPANY-18792572

PATIENT
  Age: 72 Year
  Sex: Female
  Weight: 52 kg

DRUGS (8)
  1. TAXOL INJ [Suspect]
     Route: 042
     Dates: start: 20030617, end: 20030715
  2. DECADRON [Suspect]
     Route: 042
     Dates: start: 20030617, end: 20030715
  3. HERCEPTIN [Suspect]
     Dosage: 23APR03-23APR03:220MG?02MAY03-15JUL03:150MG
     Route: 042
     Dates: start: 20030423
  4. KYTRIL [Suspect]
     Route: 042
     Dates: start: 20030617, end: 20030715
  5. ZANTAC [Suspect]
     Route: 042
     Dates: start: 20030617, end: 20030715
  6. POLARAMINE [Suspect]
     Route: 042
     Dates: start: 20030617, end: 20030715
  7. HALCION [Concomitant]
     Route: 048
     Dates: start: 20030619
  8. GASTER [Concomitant]
     Route: 048
     Dates: start: 20001117

REACTIONS (6)
  - Schizophrenia [Recovered/Resolved]
  - Myalgia [Recovered/Resolved]
  - Alopecia [Recovered/Resolved]
  - Constipation [Recovered/Resolved]
  - Headache [Recovered/Resolved]
  - Pyrexia [Unknown]
